FAERS Safety Report 7585970-5 (Version None)
Quarter: 2011Q2

REPORT INFORMATION
  Report Type: 
  Country: None (occurrence: None)
  Receive Date: 20110629
  Receipt Date: 20110629
  Transmission Date: 20111010
  Serious: Yes (Hospitalization)
  Sender: FDA-Public Use
  Company Number: None

PATIENT
  Age: 70 Year
  Sex: Male

DRUGS (1)
  1. NAFCILLIN SODIUM [Suspect]
     Indication: UROSEPSIS
     Dosage: 2 GRANS EVERY 6 HOURS IV
     Route: 042

REACTIONS (1)
  - TUBULOINTERSTITIAL NEPHRITIS [None]
